FAERS Safety Report 25817575 (Version 1)
Quarter: 2025Q3

REPORT INFORMATION
  Report Type: Spontaneous
  Country: US (occurrence: US)
  Receive Date: 20250918
  Receipt Date: 20250918
  Transmission Date: 20251020
  Serious: No
  Sender: MERCK SHARP & DOHME LLC
  Company Number: US-009507513-2326071

PATIENT
  Sex: Male
  Weight: 58 kg

DRUGS (28)
  1. SOTATERCEPT [Suspect]
     Active Substance: SOTATERCEPT
     Indication: Product used for unknown indication
  2. SOTATERCEPT [Suspect]
     Active Substance: SOTATERCEPT
  3. SOTATERCEPT [Suspect]
     Active Substance: SOTATERCEPT
  4. SOTATERCEPT [Suspect]
     Active Substance: SOTATERCEPT
  5. ATORVASTATIN CALCIUM [Concomitant]
     Active Substance: ATORVASTATIN CALCIUM
  6. Levocetirizine dihydrochloride (Levocetirizine dihydrochloride) [Concomitant]
  7. WARFARIN SODIUM [Concomitant]
     Active Substance: WARFARIN SODIUM
  8. PEPCID [Concomitant]
     Active Substance: FAMOTIDINE
  9. Fluticasone propionate (Fluticasone propionate) [Concomitant]
  10. ALLOPURINOL [Concomitant]
     Active Substance: ALLOPURINOL
  11. TRACLEER [Concomitant]
     Active Substance: BOSENTAN
  12. Lorazepam (Lorazepam [Concomitant]
  13. BIFIDOBACTERIUM ANIMALIS LACTIS [Concomitant]
     Active Substance: BIFIDOBACTERIUM ANIMALIS LACTIS
  14. SILDENAFIL CITRATE [Concomitant]
     Active Substance: SILDENAFIL CITRATE
  15. MAGNESIUM [Concomitant]
     Active Substance: MAGNESIUM
  16. Multivitamin (Vitamins nos) Tablet [Concomitant]
  17. OXYGEN [Concomitant]
     Active Substance: OXYGEN
  18. FUROSEMIDE [Concomitant]
     Active Substance: FUROSEMIDE
  19. Bosentan (Bosentan) [Concomitant]
  20. Shingrix (Varicella zoster vaccine rgE (CHO)) [Concomitant]
  21. DIGOXIN [Concomitant]
     Active Substance: DIGOXIN
  22. VITAMIN D3 [Concomitant]
     Active Substance: CHOLECALCIFEROL
  23. Sore Throat (Phenol) Spray (unspecified) [Concomitant]
  24. Loperamide (Loperamide hydrochloride) [Concomitant]
  25. Entresto (Sacubitril, Valsartan) [Concomitant]
  26. Epclusa (Sofosbuvir, Velpatasvir) [Concomitant]
  27. TYVASO DPI [Suspect]
     Active Substance: TREPROSTINIL
     Indication: Pulmonary arterial hypertension
     Dosage: (48 ?G + 32 ?G)
     Route: 055
  28. TYVASO DPI [Suspect]
     Active Substance: TREPROSTINIL
     Indication: Pulmonary arterial hypertension
     Route: 055
     Dates: start: 20230508

REACTIONS (1)
  - Platelet count decreased [Unknown]
